FAERS Safety Report 7599677-1 (Version None)
Quarter: 2011Q3

REPORT INFORMATION
  Report Type: 
  Country: None (occurrence: None)
  Receive Date: 20110711
  Receipt Date: 20110628
  Transmission Date: 20111222
  Serious: Yes (Other)
  Sender: FDA-Public Use
  Company Number: US-ELI_LILLY_AND_COMPANY-US201107000068

PATIENT
  Age: 45 Year
  Sex: Female

DRUGS (2)
  1. ADDERALL 10 [Concomitant]
  2. CYMBALTA [Suspect]
     Indication: DEPRESSION
     Dosage: 60 MG, UNKNOWN

REACTIONS (2)
  - GASTRIC BYPASS [None]
  - DRUG INEFFECTIVE [None]
